FAERS Safety Report 8266381-6 (Version None)
Quarter: 2012Q2

REPORT INFORMATION
  Report Type: 
  Country: None (occurrence: None)
  Receive Date: 20120406
  Receipt Date: 20120402
  Transmission Date: 20120825
  Serious: Yes (Other)
  Sender: FDA-Public Use
  Company Number: NL-ROCHE-1021149

PATIENT

DRUGS (8)
  1. DOXORUBICIN HYDROCHLORIDE [Suspect]
     Indication: MANTLE CELL LYMPHOMA
  2. PREDNISONE [Suspect]
     Indication: MANTLE CELL LYMPHOMA
  3. CYCLOPHOSPHAMIDE [Suspect]
     Indication: MANTLE CELL LYMPHOMA
  4. FLUDARABINE PHOSPHATE [Suspect]
     Indication: MANTLE CELL LYMPHOMA
  5. VINCRISTINE [Suspect]
     Indication: MANTLE CELL LYMPHOMA
  6. MABTHERA [Suspect]
     Indication: MANTLE CELL LYMPHOMA
  7. ROFERON-A [Suspect]
     Indication: MANTLE CELL LYMPHOMA
  8. PEGINTERFERON ALFA-2A [Suspect]
     Indication: MANTLE CELL LYMPHOMA

REACTIONS (4)
  - THROMBOCYTOPENIA [None]
  - FEBRILE NEUTROPENIA [None]
  - INFECTION [None]
  - LEUKOPENIA [None]
